FAERS Safety Report 6925178-7 (Version None)
Quarter: 2010Q3

REPORT INFORMATION
  Report Type: 
  Country: None (occurrence: None)
  Receive Date: 20100816
  Receipt Date: 20100809
  Transmission Date: 20110219
  Serious: Yes (Hospitalization, Other)
  Sender: FDA-Public Use
  Company Number: US-PFIZER INC-2010081289

PATIENT
  Sex: Male
  Weight: 66.984 kg

DRUGS (2)
  1. SOLU-MEDROL [Suspect]
     Indication: URTICARIA
     Dosage: 125 MG, UNK
     Dates: start: 20100628
  2. BENADRYL [Concomitant]
     Indication: FOOD ALLERGY
     Dosage: UNK

REACTIONS (4)
  - BLOOD PRESSURE DECREASED [None]
  - HYPERHIDROSIS [None]
  - PALLOR [None]
  - TREMOR [None]
